FAERS Safety Report 7394885-7 (Version None)
Quarter: 2011Q2

REPORT INFORMATION
  Report Type: 
  Country: None (occurrence: None)
  Receive Date: 20110405
  Receipt Date: 20110325
  Transmission Date: 20111010
  Serious: Yes (Death)
  Sender: FDA-Public Use
  Company Number: B0655209A

PATIENT
  Sex: Male

DRUGS (13)
  1. PREZISTA [Concomitant]
     Dosage: 300MG TWICE PER DAY
     Route: 048
     Dates: start: 20080714
  2. NORVIR [Concomitant]
     Route: 048
     Dates: start: 20080714
  3. AUGMENTIN DUO FORTE [Concomitant]
     Dosage: 1MG TWICE PER DAY
     Route: 048
     Dates: start: 20090414
  4. EPILIM [Concomitant]
     Route: 048
     Dates: start: 20040906
  5. ISENTRESS [Concomitant]
     Dosage: 400MG TWICE PER DAY
     Dates: start: 20080714
  6. MARAVIROC [Suspect]
     Indication: HIV INFECTION
     Dosage: 150MG TWICE PER DAY
     Route: 048
     Dates: start: 20050427, end: 20080401
  7. MARAVIROC [Suspect]
     Dosage: 300MG TWICE PER DAY
     Route: 048
     Dates: start: 20080402, end: 20080714
  8. PANADEINE FORTE [Concomitant]
     Route: 048
     Dates: start: 20090414
  9. NASONEX [Concomitant]
     Dates: start: 20061014
  10. VIAGRA [Concomitant]
     Route: 048
     Dates: start: 20080123
  11. LIPITOR [Concomitant]
     Dosage: 80MG PER DAY
     Route: 048
     Dates: start: 20060705
  12. FAMCICLOVIR [Concomitant]
     Dosage: 500MG PER DAY
     Route: 048
     Dates: start: 20050919
  13. TEMAZEPAM [Concomitant]
     Route: 048
     Dates: start: 20061014

REACTIONS (2)
  - ARTERIOSCLEROSIS CORONARY ARTERY [None]
  - ACUTE MYOCARDIAL INFARCTION [None]
